FAERS Safety Report 19183746 (Version 1)
Quarter: 2021Q2

REPORT INFORMATION
  Report Type: Spontaneous
  Country: US (occurrence: US)
  Receive Date: 20210425
  Receipt Date: 20210425
  Transmission Date: 20210717
  Serious: Yes (Hospitalization)
  Sender: FDA-Public Use
  Company Number: None

PATIENT
  Age: 28 Year
  Sex: Male
  Weight: 72.6 kg

DRUGS (3)
  1. DALBAVANCIN. [Suspect]
     Active Substance: DALBAVANCIN
     Indication: ABSCESS LIMB
     Dosage: ?          OTHER FREQUENCY:ONCE;?
     Route: 041
     Dates: start: 20210424, end: 20210424
  2. DALBAVANCIN. [Suspect]
     Active Substance: DALBAVANCIN
     Indication: STAPHYLOCOCCAL INFECTION
     Dosage: ?          OTHER FREQUENCY:ONCE;?
     Route: 041
     Dates: start: 20210424, end: 20210424
  3. D5W 500ML [Concomitant]
     Dates: start: 20210424, end: 20210424

REACTIONS (3)
  - Blood pressure decreased [None]
  - Vomiting [None]
  - Infusion related reaction [None]

NARRATIVE: CASE EVENT DATE: 20210424
